FAERS Safety Report 17376980 (Version 3)
Quarter: 2020Q3

REPORT INFORMATION
  Report Type: Spontaneous
  Country: US (occurrence: US)
  Receive Date: 20200206
  Receipt Date: 20200701
  Transmission Date: 20201102
  Serious: No
  Sender: FDA-Public Use
  Company Number: US-PFIZER INC-2020052000

PATIENT
  Age: 61 Year
  Sex: Female

DRUGS (1)
  1. XELJANZ XR [Suspect]
     Active Substance: TOFACITINIB CITRATE
     Indication: RHEUMATOID ARTHRITIS
     Dosage: 11 MG, 1X/DAY
     Route: 048
     Dates: start: 201907, end: 202006

REACTIONS (4)
  - Cough [Unknown]
  - Respiratory disorder [Recovered/Resolved]
  - Drug ineffective [Unknown]
  - Depressed mood [Unknown]

NARRATIVE: CASE EVENT DATE: 20200309
